FAERS Safety Report 8812204 (Version 1)
Quarter: 2012Q4

REPORT INFORMATION
  Report Type: Spontaneous
  Country: DK (occurrence: None)
  Receive Date: 20120925
  Receipt Date: 20120925
  Transmission Date: 20130627
  Serious: Yes (Life-Threatening, Hospitalization)
  Sender: FDA-Public Use
  Company Number: 2012MA011469

PATIENT
  Age: 42 Year
  Sex: Male

DRUGS (2)
  1. METFORMIN HYDROCHLORIDE [Suspect]
     Indication: DIABETES MELLITUS
     Route: 048
     Dates: start: 2012
  2. NOVORAPID [Concomitant]

REACTIONS (3)
  - Hypoglycaemia [None]
  - Therapeutic response unexpected [None]
  - Product substitution issue [None]
